FAERS Safety Report 13210266 (Version 3)
Quarter: 2018Q1

REPORT INFORMATION
  Report Type: Spontaneous
  Country: US (occurrence: US)
  Receive Date: 20170209
  Receipt Date: 20180103
  Transmission Date: 20180508
  Serious: No
  Sender: FDA-Public Use
  Company Number: US-ACTELION-A-US2017-149714

PATIENT
  Age: 62 Year
  Sex: Female
  Weight: 106.58 kg

DRUGS (2)
  1. UPTRAVI [Suspect]
     Active Substance: SELEXIPAG
     Dosage: 400 MCG, BID
     Route: 048
  2. UPTRAVI [Suspect]
     Active Substance: SELEXIPAG
     Indication: PULMONARY ARTERIAL HYPERTENSION
     Dosage: 200 MCG, BID
     Route: 048

REACTIONS (7)
  - Condition aggravated [Unknown]
  - Unevaluable event [Unknown]
  - Arthralgia [Unknown]
  - Musculoskeletal pain [Recovered/Resolved]
  - Vitreous floaters [Unknown]
  - Photopsia [Unknown]
  - Muscle spasms [Unknown]

NARRATIVE: CASE EVENT DATE: 20170204
